FAERS Safety Report 17174305 (Version 1)
Quarter: 2019Q4

REPORT INFORMATION
  Report Type: Spontaneous
  Country: US (occurrence: US)
  Receive Date: 20191218
  Receipt Date: 20191218
  Transmission Date: 20200122
  Serious: Yes (Hospitalization)
  Sender: FDA-Public Use
  Company Number: None

PATIENT
  Age: 20 Year
  Sex: Male

DRUGS (6)
  1. NEULASTA INJ 6MG/0.6M [Concomitant]
     Dates: start: 20191217
  2. NEUPOGEN INJ 300/0.5 [Concomitant]
     Dates: start: 20160815
  3. ZYKADIA [Suspect]
     Active Substance: CERITINIB
     Indication: AGRANULOCYTOSIS
     Dosage: ?          OTHER FREQUENCY:3 TAB DAILY W/FOOD;?
     Route: 048
     Dates: start: 20191123
  4. CETIRIZINE TAB 10MG [Concomitant]
     Dates: start: 20191119
  5. CETIRIZINE TAB 10MG [Concomitant]
     Dates: start: 20191212
  6. ONDANSETRON TAB 8MG ODT [Concomitant]
     Dates: start: 20191204

REACTIONS (1)
  - Chemotherapy [None]

NARRATIVE: CASE EVENT DATE: 20191213
